FAERS Safety Report 9791644 (Version 1)
Quarter: 2014Q1

REPORT INFORMATION
  Report Type: Report from Study
  Country: US (occurrence: US)
  Receive Date: 20140102
  Receipt Date: 20140102
  Transmission Date: 20141002
  Serious: Yes (Hospitalization)
  Sender: FDA-Public Use
  Company Number: US-ROCHE-1325348

PATIENT
  Sex: Female

DRUGS (9)
  1. TRASTUZUMAB [Suspect]
     Indication: BREAST CANCER
     Route: 065
     Dates: start: 20130820, end: 20131205
  2. LAPATINIB [Suspect]
     Indication: BREAST CANCER
     Route: 048
     Dates: start: 20130820, end: 20131114
  3. PACLITAXEL [Suspect]
     Indication: BREAST CANCER
     Route: 065
     Dates: start: 20130820
  4. OLMESARTAN [Concomitant]
     Route: 065
     Dates: start: 20130614
  5. PARACETAMOL [Concomitant]
     Route: 065
     Dates: start: 20130730, end: 20131206
  6. ANASTROZOLE [Concomitant]
  7. AZITHROMYCIN [Concomitant]
     Route: 065
     Dates: start: 20131125
  8. IBUPROFEN [Concomitant]
     Route: 065
     Dates: start: 20131003
  9. SIMVASTATIN [Concomitant]
     Route: 065
     Dates: start: 20131119

REACTIONS (3)
  - Hepatic failure [Unknown]
  - Aspartate aminotransferase increased [Unknown]
  - Alanine aminotransferase abnormal [Unknown]
